FAERS Safety Report 7496758-8 (Version None)
Quarter: 2011Q2

REPORT INFORMATION
  Report Type: 
  Country: None (occurrence: None)
  Receive Date: 20110523
  Receipt Date: 20110516
  Transmission Date: 20111010
  Serious: Yes (Hospitalization)
  Sender: FDA-Public Use
  Company Number: B0712845A

PATIENT
  Sex: Female

DRUGS (19)
  1. SODIUM CHLORIDE [Concomitant]
     Dosage: 3G PER DAY
     Route: 048
     Dates: start: 20110228, end: 20110330
  2. PROMACTA [Suspect]
     Dosage: 12.5MG PER DAY
     Route: 048
     Dates: start: 20110318
  3. ALDACTONE [Concomitant]
     Dosage: .1G PER DAY
     Route: 048
  4. PREDNISOLONE [Concomitant]
     Route: 048
     Dates: start: 20110205, end: 20110330
  5. UNKNOWN DRUG [Concomitant]
     Route: 061
     Dates: start: 20110303
  6. LENDORMIN [Concomitant]
     Dosage: .25MG PER DAY
     Route: 048
     Dates: start: 20110305, end: 20110330
  7. UNKNOWN DRUG [Concomitant]
     Dosage: 60ML PER DAY
     Route: 048
     Dates: start: 20110325, end: 20110329
  8. PROMACTA [Suspect]
     Indication: IDIOPATHIC THROMBOCYTOPENIC PURPURA
     Dosage: 12.5MG PER DAY
     Route: 048
     Dates: start: 20110309, end: 20110310
  9. WARFARIN SODIUM [Concomitant]
     Indication: ATRIAL FIBRILLATION
     Dosage: 1.5MG PER DAY
     Route: 048
     Dates: start: 20110323
  10. ADONA [Concomitant]
     Dosage: 90MG PER DAY
     Route: 048
     Dates: start: 20110214, end: 20110330
  11. MENATETRENONE [Concomitant]
     Route: 042
     Dates: start: 20110331, end: 20110331
  12. DIOVAN [Concomitant]
     Dosage: 40MG PER DAY
     Route: 048
  13. SOLDEM 3A [Concomitant]
     Dosage: 500MG PER DAY
     Route: 042
     Dates: start: 20110331, end: 20110331
  14. DIGOXIN [Concomitant]
     Route: 048
  15. VERAPAMIL HCL [Concomitant]
     Dosage: 120MG PER DAY
     Route: 048
  16. FUROSEMIDE [Concomitant]
     Dosage: 20MG PER DAY
     Route: 048
  17. LANSOPRAZOLE [Concomitant]
     Dosage: 15MG PER DAY
     Route: 048
     Dates: start: 20110205, end: 20110330
  18. MUCOSTA [Concomitant]
     Route: 048
     Dates: start: 20110221, end: 20110221
  19. FLUCONAZOLE [Concomitant]
     Dosage: 100MG PER DAY
     Route: 048
     Dates: start: 20110222, end: 20110330

REACTIONS (1)
  - INTERNATIONAL NORMALISED RATIO INCREASED [None]
